FAERS Safety Report 14582251 (Version 1)
Quarter: 2018Q1

REPORT INFORMATION
  Report Type: Spontaneous
  Country: FR (occurrence: FR)
  Receive Date: 20180228
  Receipt Date: 20180228
  Transmission Date: 20180509
  Serious: Yes (Hospitalization, Other)
  Sender: FDA-Public Use
  Company Number: FR-MYLANLABS-2018M1012560

PATIENT
  Age: 27 Year
  Sex: Male

DRUGS (2)
  1. ACETAMINOPHEN. [Suspect]
     Active Substance: ACETAMINOPHEN
     Indication: HEAD INJURY
     Dosage: 2 G, UNK
  2. TRAMADOL. [Suspect]
     Active Substance: TRAMADOL
     Indication: HEAD INJURY
     Dosage: UNK

REACTIONS (3)
  - Hepatic necrosis [Unknown]
  - Drug-induced liver injury [Unknown]
  - Cholestasis [Unknown]
